FAERS Safety Report 19075692 (Version 1)
Quarter: 2021Q1

REPORT INFORMATION
  Report Type: Spontaneous
  Country: US (occurrence: US)
  Receive Date: 20210331
  Receipt Date: 20210331
  Transmission Date: 20210420
  Serious: No
  Sender: FDA-Public Use
  Company Number: US-GLAXOSMITHKLINE-USCH2021015009

PATIENT
  Age: 60 Year
  Sex: Female

DRUGS (3)
  1. ADVIL [Suspect]
     Active Substance: IBUPROFEN
     Indication: PAIN
     Dosage: UNK
  2. VOLTAREN [Suspect]
     Active Substance: DICLOFENAC SODIUM
     Indication: ACCIDENTAL EXPOSURE TO PRODUCT
     Dosage: UNK
     Dates: start: 202103
  3. COVID?19 VACCINE NOS. [Suspect]
     Active Substance: COVID-19 VACCINE NOS
     Indication: PROPHYLAXIS
     Dosage: UNK
     Dates: start: 20210301

REACTIONS (5)
  - Erythema [Not Recovered/Not Resolved]
  - Product administration error [Unknown]
  - Skin discolouration [Unknown]
  - Rash macular [Not Recovered/Not Resolved]
  - Exposure via skin contact [Unknown]
